FAERS Safety Report 7080259-5 (Version None)
Quarter: 2010Q4

REPORT INFORMATION
  Report Type: 
  Country: None (occurrence: None)
  Receive Date: 20101103
  Receipt Date: 20101025
  Transmission Date: 20110411
  Serious: No
  Sender: FDA-Public Use
  Company Number: US-BIOGENIDEC-2010BI037369

PATIENT
  Age: 49 Year
  Sex: Female

DRUGS (2)
  1. AVONEX [Suspect]
     Indication: MULTIPLE SCLEROSIS
     Route: 030
     Dates: start: 19960209, end: 19990101
  2. AVONEX [Suspect]
     Route: 030
     Dates: start: 20000522

REACTIONS (3)
  - ABASIA [None]
  - FEELING ABNORMAL [None]
  - MOBILITY DECREASED [None]
